FAERS Safety Report 21382381 (Version 1)
Quarter: 2022Q3

REPORT INFORMATION
  Report Type: Spontaneous
  Country: US (occurrence: US)
  Receive Date: 20220927
  Receipt Date: 20220927
  Transmission Date: 20221027
  Serious: Yes (Other)
  Sender: FDA-Public Use
  Company Number: US-INCYTE CORPORATION-2022IN009157

PATIENT

DRUGS (6)
  1. JAKAFI [Suspect]
     Active Substance: RUXOLITINIB
     Indication: Metastases to liver
     Dosage: 5 MILLIGRAM, BID
     Route: 048
  2. JAKAFI [Suspect]
     Active Substance: RUXOLITINIB
     Indication: Cholangiocarcinoma
  3. JAKAFI [Suspect]
     Active Substance: RUXOLITINIB
     Indication: Soft tissue disorder
  4. JAKAFI [Suspect]
     Active Substance: RUXOLITINIB
     Indication: Peripheral embolism
  5. JAKAFI [Suspect]
     Active Substance: RUXOLITINIB
     Indication: Non-Hodgkin^s lymphoma
  6. JAKAFI [Suspect]
     Active Substance: RUXOLITINIB
     Indication: Ill-defined disorder

REACTIONS (10)
  - Metastases to liver [Unknown]
  - Cholangiocarcinoma [Unknown]
  - Non-Hodgkin^s lymphoma [Unknown]
  - Soft tissue disorder [Unknown]
  - Peripheral embolism [Unknown]
  - Ill-defined disorder [Unknown]
  - Disease progression [Unknown]
  - Swelling [Unknown]
  - Wound [Unknown]
  - Off label use [Unknown]
